FAERS Safety Report 8954378 (Version 2)
Quarter: 2012Q4

REPORT INFORMATION
  Report Type: 
  Country: FR (occurrence: FR)
  Receive Date: 20121207
  Receipt Date: 20121217
  Transmission Date: 20130627
  Serious: Yes (Other)
  Sender: FDA-Public Use
  Company Number: FR-VERTEX PHARMACEUTICALS INC.-000000000000000193

PATIENT
  Age: 55 Year
  Sex: Female
  Weight: 60 kg

DRUGS (7)
  1. VX-950 (TELAPREVIR) [Suspect]
     Indication: HEPATITIS C
     Dosage: 2 DF, tid
     Route: 048
     Dates: start: 20111007, end: 20111114
  2. PEGASYS [Suspect]
     Indication: HEPATITIS C
     Dosage: 180 ?g, qw
     Route: 058
     Dates: start: 20111007, end: 20111114
  3. RIBAVIRIN [Suspect]
     Indication: HEPATITIS C
     Dosage: Dosage Form: Tablet
     Route: 048
     Dates: start: 20111007, end: 20111114
  4. LEVOTHYROX [Concomitant]
     Indication: HYPOTHYROIDISM
     Dosage: 87.5 ?g, qd
     Route: 048
     Dates: start: 20060123
  5. NEBILOX [Concomitant]
     Indication: EXTRASYSTOLES
     Dosage: 5 mg, UNK
     Route: 048
     Dates: start: 20060123
  6. OROCAL [Concomitant]
     Indication: OSTEOPOROSIS
     Dosage: Dosage Form: Tablet
     Route: 048
     Dates: start: 20090420
  7. ACTONEL [Concomitant]
     Indication: OSTEOPOROSIS
     Dosage: 3.5 mg, qd
     Route: 048
     Dates: start: 20090420

REACTIONS (6)
  - Depression [Recovered/Resolved]
  - Chronic obstructive pulmonary disease [Not Recovered/Not Resolved]
  - Ascites [Recovered/Resolved]
  - Hepatopulmonary syndrome [Not Recovered/Not Resolved]
  - Hypothyroidism [Not Recovered/Not Resolved]
  - Anaemia [Recovered/Resolved]
